FAERS Safety Report 7859959-2 (Version None)
Quarter: 2011Q4

REPORT INFORMATION
  Report Type: 
  Country: None (occurrence: None)
  Receive Date: 20111026
  Receipt Date: 20111026
  Transmission Date: 20120403
  Serious: No
  Sender: FDA-Public Use
  Company Number: None

PATIENT
  Sex: Female

DRUGS (1)
  1. XELODA [Suspect]
     Dosage: 1500 MG BID ORAL
     Route: 048
     Dates: start: 20100909, end: 20111005

REACTIONS (2)
  - TREMOR [None]
  - HYPOAESTHESIA [None]
